FAERS Safety Report 25774538 (Version 1)
Quarter: 2025Q3

REPORT INFORMATION
  Report Type: Spontaneous
  Country: US (occurrence: US)
  Receive Date: 20250908
  Receipt Date: 20250908
  Transmission Date: 20251021
  Serious: No
  Sender: SANOFI AVENTIS
  Company Number: US-SA-2025SA266320

PATIENT
  Age: 60 Year
  Sex: Male

DRUGS (21)
  1. REZUROCK [Suspect]
     Active Substance: BELUMOSUDIL
     Indication: Graft versus host disease
     Dosage: 200 MG, BID
     Route: 048
  2. ACYCLOVIR [Concomitant]
     Active Substance: ACYCLOVIR
  3. ATOVAQUONE [Concomitant]
     Active Substance: ATOVAQUONE
  4. AZITHROMYCIN [Concomitant]
     Active Substance: AZITHROMYCIN
  5. CYCLOSPORINE [Concomitant]
     Active Substance: CYCLOSPORINE
  6. VITAMIN D3 [Concomitant]
     Active Substance: CHOLECALCIFEROL
  7. MINERALS\VITAMINS [Concomitant]
     Active Substance: MINERALS\VITAMINS
  8. DIGOXIN [Concomitant]
     Active Substance: DIGOXIN
  9. DILTIAZEM HYDROCHLORIDE [Concomitant]
     Active Substance: DILTIAZEM HYDROCHLORIDE
  10. ELIQUIS [Concomitant]
     Active Substance: APIXABAN
  11. GUAIFENESIN [Concomitant]
     Active Substance: GUAIFENESIN
  12. HYDROCHLOROTHIAZIDE [Concomitant]
     Active Substance: HYDROCHLOROTHIAZIDE
  13. LISINOPRIL [Concomitant]
     Active Substance: LISINOPRIL
  14. MAGNESIUM [Concomitant]
     Active Substance: MAGNESIUM
  15. METOPROLOL TARTRATE [Concomitant]
     Active Substance: METOPROLOL TARTRATE
  16. MONTELUKAST [Concomitant]
     Active Substance: MONTELUKAST
  17. PANTOPRAZOLE [Concomitant]
     Active Substance: PANTOPRAZOLE
  18. PREDNISONE [Concomitant]
     Active Substance: PREDNISONE
  19. POSACONAZOLE [Concomitant]
     Active Substance: POSACONAZOLE
  20. PREVYMIS [Concomitant]
     Active Substance: LETERMOVIR
  21. PULMICORT TURBUHALER [Concomitant]
     Active Substance: BUDESONIDE

REACTIONS (1)
  - Sinus disorder [Recovering/Resolving]
